FAERS Safety Report 23552269 (Version 1)
Quarter: 2024Q1

REPORT INFORMATION
  Report Type: Spontaneous
  Country: CN (occurrence: CN)
  Receive Date: 20240222
  Receipt Date: 20240222
  Transmission Date: 20240410
  Serious: Yes (Life-Threatening, Hospitalization, Other)
  Sender: FDA-Public Use
  Company Number: None

PATIENT
  Age: 17 Year
  Sex: Female

DRUGS (4)
  1. IBUPROFEN [Suspect]
     Active Substance: IBUPROFEN
     Indication: Pyrexia
     Dosage: 0.3 GRAM, FOURTH DOSE OF THE DRUG,SUSTAINED-RELEASE (CAPSULE)
     Route: 065
     Dates: start: 202212
  2. IBUPROFEN [Suspect]
     Active Substance: IBUPROFEN
     Dosage: 0.3 GRAM,SUSTAINED RELEASE (CAPSULE)
     Route: 065
     Dates: start: 202212
  3. IBUPROFEN [Suspect]
     Active Substance: IBUPROFEN
     Dosage: 0.3 GRAM,TOOK THE MEDICINE AGAIN AFTER AN INTERVAL OF 11 HOURS,SUSTAINED RELEASE(CAPSULE)
     Route: 065
     Dates: start: 202212
  4. IBUPROFEN [Suspect]
     Active Substance: IBUPROFEN
     Dosage: 0.3 GRAM,CONTINUED TO TAKE IBUPROFEN ONCE,SUSTAINED RELEASE(CAPSULE)
     Route: 065
     Dates: start: 202212

REACTIONS (4)
  - Rhabdomyolysis [Recovered/Resolved]
  - Electrolyte imbalance [Recovered/Resolved]
  - Metabolic acidosis [Recovered/Resolved]
  - Acute kidney injury [Recovered/Resolved]
